FAERS Safety Report 20382644 (Version 7)
Quarter: 2023Q1

REPORT INFORMATION
  Report Type: Spontaneous
  Country: US (occurrence: US)
  Receive Date: 20220127
  Receipt Date: 20230227
  Transmission Date: 20230418
  Serious: Yes (Hospitalization)
  Sender: FDA-Public Use
  Company Number: US-PFIZER INC-2021546886

PATIENT
  Age: 82 Year
  Sex: Male
  Weight: 78.47 kg

DRUGS (2)
  1. VYNDAMAX [Suspect]
     Active Substance: TAFAMIDIS
     Indication: Cardiac amyloidosis
     Dosage: 61 MG, 1X/DAY
     Route: 048
  2. ELIQUIS [Concomitant]
     Active Substance: APIXABAN
     Indication: Anticoagulant therapy
     Dosage: UNK, 2X/DAY (ONE IN THE MORNING AND ONE IN THE EVENING BY MOUTH)
     Route: 048

REACTIONS (5)
  - Localised infection [Recovering/Resolving]
  - Fall [Unknown]
  - Weight decreased [Recovering/Resolving]
  - Rotator cuff syndrome [Unknown]
  - Accident [Unknown]
